FAERS Safety Report 8509351-2 (Version None)
Quarter: 2012Q3

REPORT INFORMATION
  Report Type: 
  Country: None (occurrence: None)
  Receive Date: 20120713
  Receipt Date: 20120703
  Transmission Date: 20120928
  Serious: Yes (Other)
  Sender: FDA-Public Use
  Company Number: CO-AMGEN-COLSP2012042483

PATIENT
  Age: 44 Year
  Sex: Female

DRUGS (2)
  1. SICCAFLUID [Concomitant]
     Indication: DRY EYE
     Dosage: 4 DROPS DAILY
  2. ENBREL [Suspect]
     Indication: PRODUCT USED FOR UNKNOWN INDICATION
     Dosage: 50 MG, WEEKLY
     Route: 058
     Dates: start: 20040101, end: 20120501

REACTIONS (3)
  - GAIT DISTURBANCE [None]
  - DRUG EFFECT DECREASED [None]
  - SPINAL OSTEOARTHRITIS [None]
